FAERS Safety Report 8028430-X (Version None)
Quarter: 2012Q1

REPORT INFORMATION
  Report Type: 
  Country: None (occurrence: None)
  Receive Date: 20120104
  Receipt Date: 20111223
  Transmission Date: 20120608
  Serious: Yes (Death, Hospitalization, Other)
  Sender: FDA-Public Use
  Company Number: 2011SP051883

PATIENT
  Age: 72 Year
  Sex: Female

DRUGS (10)
  1. ALPRAZOLAM [Concomitant]
  2. AMLODIPINE [Concomitant]
  3. FERRO DURETTER [Concomitant]
  4. FRAGMIN [Concomitant]
  5. ESCITALOPRAM OXALATE [Suspect]
     Indication: SCHIZOAFFECTIVE DISORDER
     Dosage: 30 MG;QD;PO
     Route: 048
     Dates: end: 20111023
  6. MIRTAZAPINE [Suspect]
     Indication: SCHIZOAFFECTIVE DISORDER
     Dosage: 30 MG;QD;PO
     Route: 048
     Dates: end: 20111023
  7. ZIPRASIDONE HCL [Suspect]
     Indication: SCHIZOAFFECTIVE DISORDER
     Dosage: 40 MG;BID;PO
     Route: 048
     Dates: end: 20111023
  8. FUROSEMIDE [Concomitant]
  9. LITHIUM CITRATE [Suspect]
     Indication: SCHIZOAFFECTIVE DISORDER
     Dosage: PO
     Route: 048
     Dates: end: 20111023
  10. K CL TAB [Concomitant]

REACTIONS (7)
  - LACTIC ACIDOSIS [None]
  - RHABDOMYOLYSIS [None]
  - FALL [None]
  - ORGAN FAILURE [None]
  - NEUROLEPTIC MALIGNANT SYNDROME [None]
  - HUMERUS FRACTURE [None]
  - RENAL FAILURE [None]
